FAERS Safety Report 22530760 (Version 1)
Quarter: 2023Q2

REPORT INFORMATION
  Report Type: Spontaneous
  Country: IT (occurrence: None)
  Receive Date: 20230607
  Receipt Date: 20230607
  Transmission Date: 20230722
  Serious: Yes (Hospitalization, Other)
  Sender: FDA-Public Use
  Company Number: 2023A126354

PATIENT
  Age: 74 Year
  Sex: Male

DRUGS (6)
  1. DAPAGLIFLOZIN [Suspect]
     Active Substance: DAPAGLIFLOZIN
     Indication: Cardiac failure
     Dosage: 10.0MG UNKNOWN
     Route: 048
     Dates: start: 20230505, end: 20230505
  2. ENTRESTO [Suspect]
     Active Substance: SACUBITRIL\VALSARTAN
     Indication: Cardiac failure
     Dosage: DOSAGE: 24MG+26MG X 2/DAY
     Route: 048
     Dates: start: 20230505, end: 20230505
  3. ATORVASTATIN [Concomitant]
     Active Substance: ATORVASTATIN
  4. COUMADIN [Concomitant]
     Active Substance: WARFARIN SODIUM
  5. POTASSIO CANRENOATO [Concomitant]
  6. BISOPROLOL [Concomitant]
     Active Substance: BISOPROLOL

REACTIONS (1)
  - Anaphylactic shock [Recovered/Resolved]

NARRATIVE: CASE EVENT DATE: 20230505
